APPROVED DRUG PRODUCT: PAMIDRONATE DISODIUM
Active Ingredient: PAMIDRONATE DISODIUM
Strength: 90MG/10ML (9MG/ML)
Dosage Form/Route: INJECTABLE;INJECTION
Application: A078942 | Product #002
Applicant: AMERICAN REGENT INC
Approved: Jul 25, 2008 | RLD: No | RS: No | Type: DISCN